FAERS Safety Report 7588134-4 (Version None)
Quarter: 2011Q2

REPORT INFORMATION
  Report Type: 
  Country: None (occurrence: None)
  Receive Date: 20110603
  Receipt Date: 20110304
  Transmission Date: 20111010
  Serious: Yes (Other)
  Sender: FDA-Public Use
  Company Number: 2011SP010236

PATIENT
  Age: 43 Year
  Sex: Female

DRUGS (3)
  1. XANAX [Concomitant]
  2. PRISTIQ [Concomitant]
  3. SAPHRIS [Suspect]
     Indication: POST-TRAUMATIC STRESS DISORDER
     Dosage: 10 MG; HS;SL, 10 MG; HS;SL
     Route: 060

REACTIONS (2)
  - SWOLLEN TONGUE [None]
  - INAPPROPRIATE SCHEDULE OF DRUG ADMINISTRATION [None]
